FAERS Safety Report 4595922-5 (Version None)
Quarter: 2005Q1

REPORT INFORMATION
  Report Type: 
  Country: None (occurrence: None)
  Receive Date: 20050224
  Receipt Date: 20050210
  Transmission Date: 20050727
  Serious: Yes (Hospitalization)
  Sender: FDA-Public Use
  Company Number: 230002M05SWE

PATIENT
  Age: 71 Year
  Sex: Female

DRUGS (3)
  1. REBIF [Suspect]
     Indication: MULTIPLE SCLEROSIS
     Dosage: 22 MCG, 3 IN 1 WEEKS
     Dates: start: 20030901, end: 20040501
  2. AVONEX [Suspect]
     Indication: MULTIPLE SCLEROSIS
     Dates: start: 20011201, end: 20030101
  3. BETAFERON (INTERFERON BETA) [Suspect]
     Indication: MULTIPLE SCLEROSIS
     Dates: start: 19990101, end: 20011201

REACTIONS (5)
  - BREAST CANCER FEMALE [None]
  - METASTASES TO BONE [None]
  - METASTASES TO LIVER [None]
  - METASTASES TO LUNG [None]
  - METASTASES TO THE MEDIASTINUM [None]
